FAERS Safety Report 5596834-0 (Version None)
Quarter: 2008Q1

REPORT INFORMATION
  Report Type: 
  Country: None (occurrence: None)
  Receive Date: 20080119
  Receipt Date: 20080109
  Transmission Date: 20080703
  Serious: Yes (Death)
  Sender: FDA-Public Use
  Company Number: US-PFIZER INC-2008003785

PATIENT
  Age: 60 Year
  Sex: Female

DRUGS (7)
  1. AMLODIPINE [Suspect]
  2. OXYCODONE [Suspect]
  3. METHADONE HCL [Suspect]
  4. BENZODIAZEPINE DERIVATIVES [Suspect]
  5. ETHANOL [Suspect]
  6. CARISOPRODOL [Suspect]
  7. OLMESARTAN MEDOXOMIL [Suspect]

REACTIONS (3)
  - CARDIAC ARREST [None]
  - DEATH [None]
  - RESPIRATORY ARREST [None]
